FAERS Safety Report 6922805-5 (Version None)
Quarter: 2010Q3

REPORT INFORMATION
  Report Type: 
  Country: None (occurrence: None)
  Receive Date: 20100813
  Receipt Date: 20100803
  Transmission Date: 20110219
  Serious: Yes (Hospitalization, Other)
  Sender: FDA-Public Use
  Company Number: JP-PFIZER INC-2010060164

PATIENT
  Age: 32 Year
  Sex: Male
  Weight: 64 kg

DRUGS (6)
  1. GENOTROPIN [Suspect]
     Indication: GROWTH HORMONE DEFICIENCY
     Dosage: 0.2 MG, 1X/DAY
     Route: 058
     Dates: start: 20100427, end: 20100501
  2. TESTOSTERONE ENANTATE [Suspect]
     Indication: ANDROGEN DEFICIENCY
     Dosage: 250 MG, 1X/DAY
     Route: 058
     Dates: start: 20100427, end: 20100427
  3. CORTRIL [Concomitant]
     Dosage: 10 MG, 2X/DAY
     Route: 048
  4. DECADRON [Concomitant]
     Dosage: 0.25 MG, 2X/DAY
     Route: 048
  5. FLORINEF [Concomitant]
     Dosage: 0.1 MG, 1X/DAY
     Route: 048
  6. THYRADIN S [Concomitant]
     Dosage: 50 MG, 2X/DAY
     Route: 048

REACTIONS (2)
  - HALLUCINATION [None]
  - PSYCHIATRIC SYMPTOM [None]
